FAERS Safety Report 15478734 (Version 6)
Quarter: 2019Q1

REPORT INFORMATION
  Report Type: Spontaneous
  Country: US (occurrence: US)
  Receive Date: 20181009
  Receipt Date: 20190329
  Transmission Date: 20190417
  Serious: Yes (Hospitalization, Other)
  Sender: FDA-Public Use
  Company Number: US-BIOGEN-2018BI00642765

PATIENT
  Age: 59 Year
  Sex: Female
  Weight: 92.4 kg

DRUGS (38)
  1. METFORMIN [Concomitant]
     Active Substance: METFORMIN HYDROCHLORIDE
     Indication: PRODUCT USED FOR UNKNOWN INDICATION
     Dosage: DURING MEAL
     Route: 050
  2. ACETAMINOPHEN. [Concomitant]
     Active Substance: ACETAMINOPHEN
     Indication: PAIN
     Route: 048
     Dates: start: 201809, end: 201809
  3. ALPRAZOLAM. [Concomitant]
     Active Substance: ALPRAZOLAM
     Indication: ANXIETY
     Route: 048
     Dates: start: 201809, end: 201809
  4. CYANOCOBALAMIN. [Concomitant]
     Active Substance: CYANOCOBALAMIN
     Indication: PRODUCT USED FOR UNKNOWN INDICATION
     Route: 060
  5. GLUCAGON. [Concomitant]
     Active Substance: GLUCAGON
     Indication: HYPOGLYCAEMIA
     Dosage: 1 MG/ML
     Route: 058
     Dates: start: 201809, end: 201809
  6. METOCLOPRAMIDE. [Concomitant]
     Active Substance: METOCLOPRAMIDE
     Indication: NAUSEA
     Dosage: 5 MG/ML; PRN NAUSEA
     Route: 042
     Dates: start: 201809, end: 201809
  7. OXYCODONE-ACETAMINOPHEN [Concomitant]
     Active Substance: ACETAMINOPHEN\OXYCODONE HYDROCHLORIDE
     Indication: PAIN
     Dosage: 5MG-325 MG
     Route: 048
     Dates: start: 201809, end: 201809
  8. AMLODIPINE [Concomitant]
     Active Substance: AMLODIPINE BESYLATE
     Indication: PRODUCT USED FOR UNKNOWN INDICATION
     Route: 050
  9. BACLOFEN. [Concomitant]
     Active Substance: BACLOFEN
     Indication: MUSCLE SPASMS
     Route: 050
  10. POTASSIUM CHLORIDE IN STERILE WATER [Concomitant]
     Indication: PRODUCT USED FOR UNKNOWN INDICATION
     Dosage: SEE NARRATIVE
     Route: 042
     Dates: start: 201809, end: 201809
  11. ZOLPIDEM [Concomitant]
     Active Substance: ZOLPIDEM\ZOLPIDEM TARTRATE
     Indication: INSOMNIA
     Route: 048
     Dates: start: 201809, end: 201809
  12. LORAZEPAM. [Concomitant]
     Active Substance: LORAZEPAM
     Indication: PRODUCT USED FOR UNKNOWN INDICATION
     Dosage: 2MG/ML
     Route: 042
     Dates: start: 201809, end: 201809
  13. INSULIN GLARGINE [Concomitant]
     Active Substance: INSULIN GLARGINE
     Indication: PRODUCT USED FOR UNKNOWN INDICATION
     Dosage: 30 UNITS  AT HS FOR 60 DAYS
     Route: 058
  14. LISINOPRIL. [Concomitant]
     Active Substance: LISINOPRIL
     Indication: PRODUCT USED FOR UNKNOWN INDICATION
     Route: 050
  15. SERTRALINE [Concomitant]
     Active Substance: SERTRALINE HYDROCHLORIDE
     Indication: PRODUCT USED FOR UNKNOWN INDICATION
     Route: 050
  16. INSULIN ASPART [Concomitant]
     Active Substance: INSULIN ASPART
     Indication: PRODUCT USED FOR UNKNOWN INDICATION
     Dosage: 100 UNITS/ML, BEFORE MEALS
     Route: 058
     Dates: start: 201809, end: 201809
  17. MORPHINE [Concomitant]
     Active Substance: MORPHINE
     Indication: CHEST PAIN
     Dosage: 2 MG/ML
     Route: 042
     Dates: start: 201809, end: 201809
  18. ALBUTEROL SULFATE. [Concomitant]
     Active Substance: ALBUTEROL SULFATE
     Indication: DYSPNOEA
     Dosage: 2 PUFFS
     Route: 050
  19. ARTIFICIAL TEARS [Concomitant]
     Active Substance: GLYCERIN\HYPROMELLOSES\POLYETHYLENE GLYCOL 400
     Indication: DRY EYE
     Dosage: PRN
     Route: 047
     Dates: start: 201809, end: 201809
  20. TYSABRI [Suspect]
     Active Substance: NATALIZUMAB
     Indication: MULTIPLE SCLEROSIS
     Route: 050
     Dates: start: 20130513, end: 20180910
  21. ONDANSETRON HCL [Concomitant]
     Active Substance: ONDANSETRON HYDROCHLORIDE
     Indication: NAUSEA
     Dosage: 4MG/2ML
     Route: 042
     Dates: start: 201809, end: 201809
  22. POTASSIUM CHLORIDE. [Concomitant]
     Active Substance: POTASSIUM CHLORIDE
     Indication: PRODUCT USED FOR UNKNOWN INDICATION
     Dosage: 1 TABLETS FOR K+ 3.6-3.9?2 TABLETS FOR K+3.0-3.5?3 TABLETS FOR K+ EQUAL TO OR LESS THAN 2.9
     Route: 048
     Dates: start: 201809, end: 201809
  23. SENNOSIDES-DOCUSATE SODIUM [Concomitant]
     Active Substance: DOCUSATE SODIUM\SENNOSIDES
     Indication: PRODUCT USED FOR UNKNOWN INDICATION
     Route: 048
     Dates: start: 201809, end: 201809
  24. AMLODIPINE [Concomitant]
     Active Substance: AMLODIPINE BESYLATE
     Route: 048
     Dates: start: 201809, end: 201809
  25. OXYBUTYNIN CHLORIDE. [Concomitant]
     Active Substance: OXYBUTYNIN CHLORIDE
     Indication: PRODUCT USED FOR UNKNOWN INDICATION
     Route: 050
     Dates: end: 20180914
  26. PAROXETINE HCL [Concomitant]
     Active Substance: PAROXETINE HYDROCHLORIDE
     Indication: PRODUCT USED FOR UNKNOWN INDICATION
     Route: 050
  27. ESZOPICLONE. [Concomitant]
     Active Substance: ESZOPICLONE
     Indication: INSOMNIA
     Route: 050
  28. CYANOCOBALAMIN. [Concomitant]
     Active Substance: CYANOCOBALAMIN
     Dosage: 1000 MCG/ML
     Route: 058
  29. DEXTROSE, UNSPECIFIED FORM. [Concomitant]
     Active Substance: DEXTROSE, UNSPECIFIED FORM
     Indication: BLOOD GLUCOSE
     Dosage: 50% FOR BLOOD GLUCOSE {70
     Route: 042
  30. ALUMINUM HYDROXIDE GEL [Concomitant]
     Active Substance: ALGELDRATE
     Indication: DYSPEPSIA
     Dosage: 320 MG/5 ML SUSPENSION 30 ML
     Route: 048
     Dates: start: 201809, end: 201809
  31. ATROPINE. [Concomitant]
     Active Substance: ATROPINE
     Indication: BRADYCARDIA
     Dosage: 0.1 MG/ML. SYRINGE 5 ML
     Route: 042
     Dates: start: 201809, end: 201809
  32. ENOXAPARIN [Concomitant]
     Active Substance: ENOXAPARIN
     Indication: PRODUCT USED FOR UNKNOWN INDICATION
     Route: 058
  33. NICOTINE. [Concomitant]
     Active Substance: NICOTINE
     Indication: PRODUCT USED FOR UNKNOWN INDICATION
     Route: 062
     Dates: start: 201809, end: 201809
  34. NITROGLYCERIN. [Concomitant]
     Active Substance: NITROGLYCERIN
     Indication: CHEST PAIN
     Route: 060
     Dates: start: 201809, end: 201809
  35. PREGABALIN. [Concomitant]
     Active Substance: PREGABALIN
     Indication: PRODUCT USED FOR UNKNOWN INDICATION
     Route: 050
  36. ALPRAZOLAM. [Concomitant]
     Active Substance: ALPRAZOLAM
     Dosage: 1MG-BEFORE PATIENT LEAVES UNTI?1MG-BEFORE PATIENT GOES TO MRI?1MG- EVERY 10 MIN PRN FOR SEDATION X 2
     Route: 042
  37. TOVIAZ [Concomitant]
     Active Substance: FESOTERODINE FUMARATE
     Indication: HYPERTONIC BLADDER
     Route: 048
     Dates: start: 20180914
  38. ERGOCALCIFEROL. [Concomitant]
     Active Substance: ERGOCALCIFEROL
     Indication: PRODUCT USED FOR UNKNOWN INDICATION
     Route: 048

REACTIONS (5)
  - Lymphoma [Unknown]
  - Progressive multifocal leukoencephalopathy [Unknown]
  - Behcet^s syndrome [Unknown]
  - Multiple sclerosis relapse [Unknown]
  - Decubitus ulcer [Unknown]

NARRATIVE: CASE EVENT DATE: 20180908
